FAERS Safety Report 7708273-4 (Version None)
Quarter: 2011Q3

REPORT INFORMATION
  Report Type: 
  Country: None (occurrence: None)
  Receive Date: 20110825
  Receipt Date: 20110817
  Transmission Date: 20111222
  Serious: No
  Sender: FDA-Public Use
  Company Number: US-BIOGENIDEC-2011BI031709

PATIENT
  Age: 32 Year
  Sex: Female

DRUGS (2)
  1. TYSABRI [Suspect]
     Route: 042
     Dates: start: 20100118, end: 20100118
  2. TYSABRI [Suspect]
     Indication: CROHN'S DISEASE
     Route: 042
     Dates: start: 20101230, end: 20110620

REACTIONS (6)
  - DYSARTHRIA [None]
  - HEADACHE [None]
  - NAUSEA [None]
  - COLON DYSPLASIA [None]
  - WHITE BLOOD CELL COUNT INCREASED [None]
  - URTICARIA [None]
